FAERS Safety Report 9603587 (Version 1)
Quarter: 2013Q4

REPORT INFORMATION
  Report Type: Spontaneous
  Country: US (occurrence: US)
  Receive Date: 20131007
  Receipt Date: 20131007
  Transmission Date: 20140711
  Serious: No
  Sender: FDA-Public Use
  Company Number: US-PFIZER INC-2013282746

PATIENT
  Sex: 0

DRUGS (7)
  1. ZOLOFT [Suspect]
     Dosage: UNK, AT NIGHT
  2. WELLBUTRIN XL [Suspect]
     Dosage: 150 MG, UNK
  3. WELLBUTRIN [Suspect]
     Dosage: 37.5 MG (CUT A 75 MG IN HALF), UNK
  4. WELLBUTRIN [Suspect]
     Dosage: 75 MG, IN THE AM
  5. PROZAC [Suspect]
     Dosage: UNK, AT NIGHT
  6. SPIRONOLACTONE [Suspect]
     Indication: ACNE
     Dosage: 100 MG, UNK
  7. CYMBALTA [Suspect]
     Dosage: UNK

REACTIONS (6)
  - Insomnia [Unknown]
  - Anxiety [Unknown]
  - Drug ineffective [Unknown]
  - Bedridden [Unknown]
  - Weight increased [Unknown]
  - Back pain [Unknown]
